FAERS Safety Report 6043562-3 (Version None)
Quarter: 2009Q1

REPORT INFORMATION
  Report Type: 
  Country: None (occurrence: None)
  Receive Date: 20090115
  Receipt Date: 20081017
  Transmission Date: 20090719
  Serious: Yes (Hospitalization, Other)
  Sender: FDA-Public Use
  Company Number: 1000001307

PATIENT
  Age: 62 Year
  Sex: Female

DRUGS (2)
  1. ESCITALOPRAM [Suspect]
     Dosage: 10 MG (10 MG, 1 IN 1 D)
  2. PALIPERIDONE [Suspect]
     Dosage: 6 MG (6 MG, 1 IN 1 D)

REACTIONS (6)
  - AGITATION [None]
  - AKATHISIA [None]
  - CHOREOATHETOSIS [None]
  - DRUG INTERACTION [None]
  - HYPOMANIA [None]
  - NERVOUSNESS [None]
